FAERS Safety Report 16007565 (Version 2)
Quarter: 2019Q1

REPORT INFORMATION
  Report Type: Spontaneous
  Country: SK (occurrence: SK)
  Receive Date: 20190226
  Receipt Date: 20190304
  Transmission Date: 20190418
  Serious: Yes (Other)
  Sender: FDA-Public Use
  Company Number: SK-JNJFOC-20190202180

PATIENT
  Age: 57 Year
  Sex: Male
  Weight: 115 kg

DRUGS (3)
  1. INFLIXIMAB, RECOMBINANT [Suspect]
     Active Substance: INFLIXIMAB
     Indication: HIDRADENITIS
     Route: 042
  2. ADALIMUMAB [Suspect]
     Active Substance: ADALIMUMAB
     Indication: HIDRADENITIS
     Route: 065
  3. PREDNISOLONE. [Concomitant]
     Active Substance: PREDNISOLONE
     Indication: HIDRADENITIS
     Route: 065

REACTIONS (7)
  - Vasculitis necrotising [Recovering/Resolving]
  - Off label use [Unknown]
  - Skin ulcer [Unknown]
  - Hypersensitivity vasculitis [Recovering/Resolving]
  - Necrosis [Unknown]
  - Ulcer [Unknown]
  - Drug ineffective for unapproved indication [Unknown]
